FAERS Safety Report 11869425 (Version 1)
Quarter: 2015Q4

REPORT INFORMATION
  Report Type: Spontaneous
  Country: IT (occurrence: IT)
  Receive Date: 20151227
  Receipt Date: 20151227
  Transmission Date: 20160305
  Serious: Yes (Hospitalization, Other)
  Sender: FDA-Public Use
  Company Number: IT-TEVA-608409ACC

PATIENT
  Age: 66 Year
  Sex: Male
  Weight: 92 kg

DRUGS (6)
  1. IPERTEN - CHIESI FARMACEUTICI S.P.A. 20 MG COMPRESSE [Concomitant]
     Indication: HYPERTENSION
     Dosage: 20 MG
     Route: 048
  2. CISPLATINO TEVA ITALIA [Suspect]
     Active Substance: CISPLATIN
     Indication: LUNG ADENOCARCINOMA
     Dosage: 150 MG CYCLICAL, CONCENTRATE FOR SOLUTION FOR INFUSION
     Route: 042
     Dates: start: 20150805, end: 20151002
  3. GEMZAR [Suspect]
     Active Substance: GEMCITABINE HYDROCHLORIDE
     Indication: LUNG ADENOCARCINOMA
     Dosage: 2000 MG CYCLICAL, POWDER FOR SOLUTION FOR INFUSION
     Route: 042
     Dates: start: 20150805, end: 20151002
  4. CLEXANE T - 8000 UI AXA/0,8 ML SOLUZIONE INIETTABILE [Suspect]
     Active Substance: ENOXAPARIN SODIUM
     Indication: PROPHYLAXIS
     Dosage: 8000 IU (INTERNATIONAL UNIT) DAILY; 8000 IU DAILY
     Route: 058
     Dates: start: 20150901, end: 20151016
  5. COAPROVEL - SANOFI PHARMA BRISTOLMYERS SQUIBB SNC 300 MG /12,5 MG COMP [Concomitant]
     Indication: HYPERTENSION
     Dosage: 1 DF
     Route: 048
  6. DIAMOX - TEOFARMA S.R.L 250 MG COMPRESSE [Concomitant]
     Indication: OEDEMA
     Dosage: 250 MG
     Route: 048

REACTIONS (8)
  - Amnesia [Unknown]
  - Confusional state [Not Recovered/Not Resolved]
  - Peripheral sensory neuropathy [Unknown]
  - Thrombocytopenia [Not Recovered/Not Resolved]
  - Asthenia [Not Recovered/Not Resolved]
  - Fatigue [Not Recovered/Not Resolved]
  - Epistaxis [Unknown]
  - Headache [Recovering/Resolving]

NARRATIVE: CASE EVENT DATE: 20151009
